FAERS Safety Report 7934479-5 (Version None)
Quarter: 2011Q4

REPORT INFORMATION
  Report Type: 
  Country: None (occurrence: None)
  Receive Date: 20111122
  Receipt Date: 20111103
  Transmission Date: 20120403
  Serious: Yes (Other)
  Sender: FDA-Public Use
  Company Number: TR-GLAXOSMITHKLINE-B0762103A

PATIENT
  Sex: Female
  Weight: 70 kg

DRUGS (5)
  1. MIRTAZAPINE [Concomitant]
     Dosage: 30MG PER DAY
     Route: 048
  2. PAXIL [Suspect]
     Indication: GENERALISED ANXIETY DISORDER
     Dosage: 10MG PER DAY
     Route: 065
     Dates: start: 20111014, end: 20111015
  3. ATORVASTATIN [Concomitant]
     Dosage: 20MG PER DAY
     Route: 048
  4. TOPIRAMATE [Concomitant]
     Dosage: 25MG TWICE PER DAY
     Route: 048
  5. DIOVAN HCT [Concomitant]
     Route: 048

REACTIONS (5)
  - BALANCE DISORDER [None]
  - FALL [None]
  - DIZZINESS [None]
  - VERTIGO [None]
  - HEAD INJURY [None]
